FAERS Safety Report 15190736 (Version 1)
Quarter: 2018Q3

REPORT INFORMATION
  Report Type: Spontaneous
  Country: US (occurrence: US)
  Receive Date: 20180724
  Receipt Date: 20180724
  Transmission Date: 20181010
  Serious: No
  Sender: FDA-Public Use
  Company Number: US-009507513-1807USA007047

PATIENT
  Sex: Male

DRUGS (1)
  1. SINGULAIR [Suspect]
     Active Substance: MONTELUKAST SODIUM

REACTIONS (6)
  - Erythema [Unknown]
  - Insomnia [Unknown]
  - Pruritus [Unknown]
  - Drug ineffective [Unknown]
  - Flushing [Unknown]
  - Eye irritation [Unknown]
